FAERS Safety Report 6040612-5 (Version None)
Quarter: 2009Q1

REPORT INFORMATION
  Report Type: 
  Country: None (occurrence: None)
  Receive Date: 20090116
  Receipt Date: 20080415
  Transmission Date: 20090719
  Serious: No
  Sender: FDA-Public Use
  Company Number: US-BRISTOL-MYERS SQUIBB COMPANY-14153282

PATIENT
  Age: 2 Decade
  Sex: Male

DRUGS (3)
  1. ABILIFY [Suspect]
     Indication: BIPOLAR DISORDER
  2. VENLAFAXINE HCL [Suspect]
     Indication: BIPOLAR DISORDER
  3. MIRTAZAPINE [Suspect]
     Indication: BIPOLAR DISORDER

REACTIONS (2)
  - AKATHISIA [None]
  - CATATONIA [None]
